FAERS Safety Report 18564901 (Version 2)
Quarter: 2021Q1

REPORT INFORMATION
  Report Type: Report from Study
  Country: US (occurrence: US)
  Receive Date: 20201201
  Receipt Date: 20210104
  Transmission Date: 20210419
  Serious: No
  Sender: FDA-Public Use
  Company Number: US-AGIOS-2011US02299

PATIENT

DRUGS (4)
  1. TIBSOVO [Suspect]
     Active Substance: IVOSIDENIB
     Indication: ACUTE MYELOID LEUKAEMIA
     Dosage: 250 MILLIGRAM, QD
     Route: 048
     Dates: start: 20201103
  2. PRAMICONAZOLE. [Concomitant]
     Active Substance: PRAMICONAZOLE
  3. TIBSOVO [Suspect]
     Active Substance: IVOSIDENIB
     Dosage: 250 MILLIGRAM, 2 TABLET (500 MG), QD
     Route: 048
  4. ACYCLOVIR                          /00587301/ [Concomitant]
     Active Substance: ACYCLOVIR

REACTIONS (5)
  - Arthralgia [Unknown]
  - Musculoskeletal stiffness [Unknown]
  - Dyspnoea [Unknown]
  - Myalgia [Unknown]
  - Off label use [Recovered/Resolved]

NARRATIVE: CASE EVENT DATE: 20201103
